FAERS Safety Report 9406272 (Version 1)
Quarter: 2013Q3

REPORT INFORMATION
  Report Type: Spontaneous
  Country: US (occurrence: US)
  Receive Date: 20130717
  Receipt Date: 20130717
  Transmission Date: 20140515
  Serious: Yes (Other)
  Sender: FDA-Public Use
  Company Number: US-RB-054128-13

PATIENT
  Age: 19 Year
  Sex: Female

DRUGS (5)
  1. SUBOXONE FILM [Suspect]
     Indication: DRUG DEPENDENCE
     Dosage: SUBOXONE FILM; TAKING 1/3 OF THE STRIP DAILY
     Route: 060
     Dates: start: 2011, end: 201305
  2. SUBUTEX [Suspect]
     Indication: DRUG DEPENDENCE
     Route: 065
     Dates: start: 201305
  3. IMITREX [Concomitant]
     Indication: HEADACHE
     Dosage: UNKNOWN DOSING DETAILS
     Route: 065
     Dates: end: 201305
  4. TOPAMAX [Concomitant]
     Indication: HEADACHE
     Dosage: DOSING DETAILS UNKNOWN
     Route: 065
     Dates: end: 201305
  5. NICOTINE [Concomitant]
     Indication: NICOTINE DEPENDENCE
     Dosage: DAILY
     Route: 055
     Dates: end: 201305

REACTIONS (4)
  - Substance abuse [Recovered/Resolved]
  - Wrong technique in drug usage process [Recovered/Resolved]
  - Exposure during pregnancy [Recovered/Resolved]
  - Abortion spontaneous [Recovered/Resolved]
